FAERS Safety Report 22867324 (Version 3)
Quarter: 2024Q3

REPORT INFORMATION
  Report Type: Spontaneous
  Country: US (occurrence: US)
  Receive Date: 20230825
  Receipt Date: 20240905
  Transmission Date: 20241016
  Serious: Yes (Hospitalization, Other)
  Sender: PFIZER
  Company Number: US-PFIZER INC-202300281723

PATIENT
  Age: 57 Year
  Sex: Female
  Weight: 61.23 kg

DRUGS (4)
  1. OXBRYTA [Suspect]
     Active Substance: VOXELOTOR
     Indication: Sickle cell disease
     Dosage: 3 TABLETS
     Dates: start: 2019
  2. OXBRYTA [Suspect]
     Active Substance: VOXELOTOR
     Dosage: 500 MG 3 TABLETS
     Route: 048
     Dates: start: 202007
  3. HYDROXYUREA [Concomitant]
     Active Substance: HYDROXYUREA
     Dosage: UNK
  4. ENDARI [Concomitant]
     Active Substance: GLUTAMINE
     Indication: Sickle cell disease
     Dosage: UNK

REACTIONS (13)
  - Cerebrovascular accident [Recovered/Resolved with Sequelae]
  - Atrial fibrillation [Unknown]
  - Pneumonia staphylococcal [Unknown]
  - Blindness [Unknown]
  - Haemoglobin decreased [Recovering/Resolving]
  - Pain [Unknown]
  - Sickle cell anaemia with crisis [Unknown]
  - Visual field defect [Unknown]
  - Hypoaesthesia [Recovering/Resolving]
  - Dysphonia [Unknown]
  - Mobility decreased [Unknown]
  - Renal disorder [Not Recovered/Not Resolved]
  - Feeling hot [Unknown]

NARRATIVE: CASE EVENT DATE: 20220828
